FAERS Safety Report 13769984 (Version 1)
Quarter: 2017Q3

REPORT INFORMATION
  Report Type: Spontaneous
  Country: US (occurrence: US)
  Receive Date: 20170719
  Receipt Date: 20170719
  Transmission Date: 20171127
  Serious: No
  Sender: FDA-Public Use
  Company Number: US-GE HEALTHCARE LIFE SCIENCES-2017CSU001896

PATIENT
  Age: 50 Year
  Sex: Female
  Weight: 65.76 kg

DRUGS (3)
  1. BENADRYL [Concomitant]
     Active Substance: DIPHENHYDRAMINE HYDROCHLORIDE
     Indication: PREMEDICATION
     Dosage: UNK
     Dates: start: 20170628, end: 20170628
  2. OMNIPAQUE [Suspect]
     Active Substance: IOHEXOL
     Indication: PAIN
     Dosage: 90 ML, SINGLE
     Route: 042
     Dates: start: 20170628, end: 20170628
  3. PREDNISONE. [Concomitant]
     Active Substance: PREDNISONE
     Indication: PREMEDICATION
     Dosage: UNK
     Dates: start: 20170628, end: 20170628

REACTIONS (1)
  - Contrast media allergy [Recovered/Resolved]

NARRATIVE: CASE EVENT DATE: 20170628
